FAERS Safety Report 17978618 (Version 2)
Quarter: 2020Q3

REPORT INFORMATION
  Report Type: Spontaneous
  Country: DE (occurrence: DE)
  Receive Date: 20200703
  Receipt Date: 20200713
  Transmission Date: 20201103
  Serious: Yes (Hospitalization, Other)
  Sender: FDA-Public Use
  Company Number: DE-TORRENT-00017926

PATIENT
  Age: 14 Year
  Sex: Male
  Weight: 72 kg

DRUGS (3)
  1. BUCCOLAM [Concomitant]
     Active Substance: MIDAZOLAM HYDROCHLORIDE
     Indication: SEIZURE
     Dosage: 10 MG MILLGRAM(S) EVERY TOTAL
     Dates: start: 20180803
  2. TOPIRAMATE. [Suspect]
     Active Substance: TOPIRAMATE
     Indication: EPILEPSY
     Dosage: 250 MG MILLGRAM(S) EVERY DAYS 2 SEPARATED DOSES
     Route: 048
  3. VALPROAT [Suspect]
     Active Substance: VALPROATE SODIUM
     Indication: EPILEPSY
     Dosage: 300MG?0?450MG
     Route: 048

REACTIONS (4)
  - Drug withdrawal convulsions [Unknown]
  - Metabolic acidosis [Recovering/Resolving]
  - Cyanosis [Recovering/Resolving]
  - Seizure [Recovered/Resolved]

NARRATIVE: CASE EVENT DATE: 20180803
